FAERS Safety Report 8958476 (Version 1)
Quarter: 2012Q4

REPORT INFORMATION
  Report Type: Spontaneous
  Country: US (occurrence: None)
  Receive Date: 20121205
  Receipt Date: 20121205
  Transmission Date: 20130627
  Serious: Yes (Hospitalization)
  Sender: FDA-Public Use
  Company Number: None

PATIENT
  Sex: Male
  Weight: 105.3 kg

DRUGS (2)
  1. CARBOPLATIN [Suspect]
     Dates: start: 20121004, end: 20121115
  2. PACLITAXEL (TAXOL) [Suspect]
     Dosage: 402 mg
     Dates: start: 20121115, end: 20121126

REACTIONS (2)
  - Pyrexia [None]
  - Neutropenia [None]
